FAERS Safety Report 14757311 (Version 1)
Quarter: 2018Q2

REPORT INFORMATION
  Report Type: Spontaneous
  Country: US (occurrence: US)
  Receive Date: 20180413
  Receipt Date: 20180413
  Transmission Date: 20180711
  Serious: Yes (Life-Threatening, Hospitalization, Disabling, Other)
  Sender: FDA-Public Use
  Company Number: US-009507513-1804USA004142

PATIENT
  Sex: Male

DRUGS (4)
  1. GUANIDINE [Suspect]
     Active Substance: GUANIDINE
     Indication: MYASTHENIC SYNDROME
     Dosage: 2 DF, BID
     Route: 048
     Dates: start: 201802, end: 201804
  2. GUANIDINE [Suspect]
     Active Substance: GUANIDINE
     Dosage: 2 DF, QID
     Route: 048
     Dates: start: 1998, end: 201802
  3. MESTINON [Concomitant]
     Active Substance: PYRIDOSTIGMINE BROMIDE
     Dosage: BOTH SHORT ACTING AND TIMESPAN
  4. GLOBULIN, IMMUNE [Concomitant]
     Active Substance: HUMAN IMMUNOGLOBULIN G
     Dosage: EVERY 4 WEEKS
     Route: 042

REACTIONS (4)
  - Incorrect dose administered [Unknown]
  - Fatigue [Not Recovered/Not Resolved]
  - Asthenia [Not Recovered/Not Resolved]
  - Product availability issue [Not Recovered/Not Resolved]

NARRATIVE: CASE EVENT DATE: 201802
